FAERS Safety Report 20600045 (Version 1)
Quarter: 2022Q1

REPORT INFORMATION
  Report Type: Spontaneous
  Country: US (occurrence: US)
  Receive Date: 20220316
  Receipt Date: 20220316
  Transmission Date: 20220423
  Serious: Yes (Death)
  Sender: FDA-Public Use
  Company Number: US-CELGENE-USA-20220304504

PATIENT
  Age: 82 Year
  Sex: Male
  Weight: 95.794 kg

DRUGS (4)
  1. POMALYST [Suspect]
     Active Substance: POMALIDOMIDE
     Indication: Plasma cell myeloma
     Dosage: 4 MILLIGRAM
     Route: 048
     Dates: start: 201806
  2. POMALYST [Suspect]
     Active Substance: POMALIDOMIDE
     Dosage: 2
     Route: 048
     Dates: start: 201808
  3. POMALYST [Suspect]
     Active Substance: POMALIDOMIDE
     Dosage: 1-2 MILLIGRAM
     Route: 048
     Dates: start: 202109
  4. POMALYST [Suspect]
     Active Substance: POMALIDOMIDE
     Dosage: 1 MILLIGRAM
     Route: 048
     Dates: start: 202202

REACTIONS (1)
  - Death [Fatal]

NARRATIVE: CASE EVENT DATE: 20220219
